FAERS Safety Report 9096532 (Version 3)
Quarter: 2015Q2

REPORT INFORMATION
  Report Type: Spontaneous
  Country: US (occurrence: US)
  Receive Date: 20130211
  Receipt Date: 20150609
  Transmission Date: 20150821
  Serious: Yes (Other)
  Sender: FDA-Public Use
  Company Number: US-AMGEN-USASP2013007400

PATIENT
  Age: 74 Year
  Sex: Female
  Weight: 46.4 kg

DRUGS (14)
  1. GLUCOSAMINE W/CHONDROITIN [Concomitant]
     Active Substance: CHONDROITIN SULFATE A\GLUCOSAMINE
     Dosage: 1000/500 MG, QD
  2. VITAMIN D                          /00107901/ [Concomitant]
     Active Substance: ERGOCALCIFEROL
     Dosage: 50000 IU, Q2WK
  3. ATORVASTATIN [Concomitant]
     Active Substance: ATORVASTATIN
     Dosage: 20 MG, QD
  4. CENTRUM SILVER                     /02363801/ [Concomitant]
     Active Substance: VITAMINS
     Dosage: 1 DF (TAB), QD
     Route: 048
  5. B COMPLEX                          /00322001/ [Concomitant]
     Dosage: UNK UNK, QD
  6. PROLIA [Suspect]
     Active Substance: DENOSUMAB
     Indication: OSTEOPOROSIS POSTMENOPAUSAL
     Dosage: 60 MG/ML, Q6MO
     Route: 058
     Dates: start: 20110401
  7. CALCIUM AND VIT D [Concomitant]
     Dosage: 600 MG, BID
  8. NIACIN. [Concomitant]
     Active Substance: NIACIN
     Dosage: 250 MG, BID
  9. VITAMIN C [Concomitant]
     Active Substance: ASCORBIC ACID
     Dosage: 500 MG, QD
  10. TERIPARATIDE [Concomitant]
     Active Substance: TERIPARATIDE
     Dosage: 20 MUG, UNK
  11. METAMUCIL [Concomitant]
     Active Substance: PLANTAGO SEED
     Dosage: UNK UNK, AS NECESSARY
  12. TETRACYCLINE [Concomitant]
     Active Substance: TETRACYCLINE
     Dosage: 250 MG, QD
  13. MSM [Concomitant]
     Active Substance: DIMETHYL SULFONE
     Dosage: UNK UNK, BID
  14. ASPIRIN                            /00002701/ [Concomitant]
     Active Substance: ASPIRIN
     Dosage: 81 MG, QD

REACTIONS (7)
  - Endocrine disorder [Unknown]
  - Hyperlipidaemia [Unknown]
  - Osteonecrosis of jaw [Recovered/Resolved]
  - Tooth disorder [Unknown]
  - Agitation [Unknown]
  - Weight decreased [Unknown]
  - Bone disorder [Unknown]

NARRATIVE: CASE EVENT DATE: 20130112
